FAERS Safety Report 13332303 (Version 1)
Quarter: 2017Q1

REPORT INFORMATION
  Report Type: Report from Study
  Country: BR (occurrence: BR)
  Receive Date: 20170314
  Receipt Date: 20170314
  Transmission Date: 20170428
  Serious: Yes (Hospitalization)
  Sender: FDA-Public Use
  Company Number: PHHY2017BR037196

PATIENT
  Sex: Male
  Weight: 50 kg

DRUGS (1)
  1. DIOVAN [Suspect]
     Active Substance: VALSARTAN
     Indication: CARDIAC DISORDER
     Dosage: 2 DF, BID (2 TABLETS IN THE MORNING AND EVENING)
     Route: 048

REACTIONS (5)
  - Product use issue [Unknown]
  - Anaemia [Recovering/Resolving]
  - Pneumonia [Recovered/Resolved]
  - Sedation [Unknown]
  - Inappropriate schedule of drug administration [Unknown]
